FAERS Safety Report 9977836 (Version 2)
Quarter: 2014Q1

REPORT INFORMATION
  Report Type: Report from Study
  Country: US (occurrence: US)
  Receive Date: 20140306
  Receipt Date: 20140306
  Transmission Date: 20141002
  Serious: No
  Sender: FDA-Public Use
  Company Number: US-ABBVIE-13P-163-1150153-00

PATIENT
  Age: 64 Year
  Sex: Male

DRUGS (7)
  1. HUMIRA [Suspect]
     Indication: COLITIS ULCERATIVE
     Dates: start: 20130913, end: 20130913
  2. HUMIRA [Suspect]
     Route: 058
     Dates: end: 20131123
  3. PRAVACHOL [Concomitant]
     Indication: BLOOD CHOLESTEROL INCREASED
     Route: 048
  4. TRILIPIX [Concomitant]
     Indication: BLOOD TRIGLYCERIDES
     Route: 048
  5. TRILIPIX [Concomitant]
     Indication: BLOOD CHOLESTEROL INCREASED
  6. UCERIS [Concomitant]
     Indication: COLITIS ULCERATIVE
  7. ASACOL [Concomitant]
     Indication: COLITIS ULCERATIVE

REACTIONS (3)
  - Drug effect delayed [Not Recovered/Not Resolved]
  - Diarrhoea [Not Recovered/Not Resolved]
  - Drug ineffective [Not Recovered/Not Resolved]
